FAERS Safety Report 18627459 (Version 2)
Quarter: 2020Q4

REPORT INFORMATION
  Report Type: Report from Study
  Country: US (occurrence: US)
  Receive Date: 20201217
  Receipt Date: 20201221
  Transmission Date: 20210114
  Serious: Yes (Hospitalization)
  Sender: FDA-Public Use
  Company Number: US-SA-2020SA357208

PATIENT

DRUGS (14)
  1. BLINDED NO STUDY DRUG GIVEN [Suspect]
     Active Substance: INVESTIGATIONAL PRODUCT
     Indication: DERMATITIS ATOPIC
     Dosage: 300 MG, 1X
     Route: 058
     Dates: start: 20200825, end: 20200825
  2. CLINDAMYCIN. [Concomitant]
     Active Substance: CLINDAMYCIN
     Indication: SKIN INFECTION
     Dosage: 11 ML, TID
     Route: 048
     Dates: start: 20200923, end: 20200928
  3. BLINDED NO STUDY DRUG GIVEN [Suspect]
     Active Substance: INVESTIGATIONAL PRODUCT
     Dosage: 300 MG, Q4W
     Route: 058
     Dates: start: 20200922
  4. AQUAPHOR [Concomitant]
     Active Substance: PETROLATUM
     Indication: DERMATITIS ATOPIC
     Dosage: 1 DF, BID
     Route: 061
     Dates: start: 20200214
  5. CEFDINIR. [Concomitant]
     Active Substance: CEFDINIR
     Indication: SKIN INFECTION
     Dosage: 5 ML, QD
     Route: 048
     Dates: start: 20201115
  6. ACYCLOVIR [ACICLOVIR] [Concomitant]
     Active Substance: ACYCLOVIR
     Indication: SKIN INFECTION
     Dosage: 15 ML, BID
     Route: 048
     Dates: start: 20200923, end: 20200923
  7. BLINDED DUPILUMAB [Suspect]
     Active Substance: DUPILUMAB
     Dosage: 300 MG, Q4W
     Route: 058
     Dates: start: 20200922
  8. HYDROXYZINE HCL [Concomitant]
     Active Substance: HYDROXYZINE HYDROCHLORIDE
     Indication: PRURITUS
     Dosage: 7.5 ML, QD
     Route: 048
     Dates: start: 20200106
  9. PLACEBO [Suspect]
     Active Substance: UNSPECIFIED INGREDIENT
     Dosage: 300 MG, Q4W
     Route: 058
     Dates: start: 20200922
  10. BLINDED DUPILUMAB [Suspect]
     Active Substance: DUPILUMAB
     Indication: DERMATITIS ATOPIC
     Dosage: 300 MG, 1X
     Route: 058
     Dates: start: 20200825, end: 20200825
  11. PLACEBO [Suspect]
     Active Substance: UNSPECIFIED INGREDIENT
     Indication: DERMATITIS ATOPIC
     Dosage: 300 MG, 1X
     Route: 058
     Dates: start: 20200825, end: 20200825
  12. CETIRIZINE HCL [Concomitant]
     Active Substance: CETIRIZINE HYDROCHLORIDE
     Indication: PRURITUS
     Dosage: 7.5 ML, QD
     Route: 048
     Dates: start: 20200106
  13. VANICREAM [Concomitant]
     Active Substance: TITANIUM DIOXIDE\ZINC OXIDE
     Indication: DERMATITIS ATOPIC
     Dosage: 1 DF, BID
     Route: 061
     Dates: start: 20200214
  14. MUPIROCIN. [Concomitant]
     Active Substance: MUPIROCIN
     Indication: DERMATITIS ATOPIC
     Dosage: 1 DF, BID
     Route: 061
     Dates: start: 20200625

REACTIONS (2)
  - Skin infection [Recovered/Resolved]
  - Hypersensitivity [Recovered/Resolved]

NARRATIVE: CASE EVENT DATE: 20201126
